FAERS Safety Report 6600512-6 (Version None)
Quarter: 2010Q1

REPORT INFORMATION
  Report Type: 
  Country: None (occurrence: None)
  Receive Date: 20100224
  Receipt Date: 20100222
  Transmission Date: 20100710
  Serious: Yes (Hospitalization)
  Sender: FDA-Public Use
  Company Number: NO-MERCK-1002NOR00013

PATIENT
  Age: 83 Year
  Sex: Male

DRUGS (7)
  1. ZOCOR [Suspect]
     Indication: HYPERLIPIDAEMIA
     Route: 048
  2. IBUMETIN [Suspect]
     Indication: PAIN
     Route: 048
  3. SELEXID (AMDINOCILLIN PIVOXIL HYDROCHLORIDE) [Suspect]
     Indication: URINARY TRACT INFECTION
     Route: 048
     Dates: start: 20090522
  4. COZAAR [Concomitant]
     Indication: HYPERTENSION
     Route: 048
  5. ALBYL-E [Concomitant]
     Indication: ANTIPLATELET THERAPY
     Route: 048
  6. SOBRIL [Concomitant]
     Indication: RESTLESSNESS
     Route: 048
  7. METOPROLOL [Concomitant]
     Indication: HYPERTENSION
     Route: 048

REACTIONS (4)
  - ARTHRALGIA [None]
  - MYALGIA [None]
  - RENAL FAILURE [None]
  - RHABDOMYOLYSIS [None]
